FAERS Safety Report 21205817 (Version 1)
Quarter: 2022Q3

REPORT INFORMATION
  Report Type: Spontaneous
  Country: FR (occurrence: FR)
  Receive Date: 20220812
  Receipt Date: 20220812
  Transmission Date: 20221026
  Serious: Yes (Hospitalization)
  Sender: FDA-Public Use
  Company Number: None

PATIENT
  Age: 63 Year
  Sex: Female

DRUGS (11)
  1. SPIRONOLACTONE [Interacting]
     Active Substance: SPIRONOLACTONE
     Indication: Product used for unknown indication
     Dosage: UNIT DOSE : 25 MG , FREQUENCY TIME : 1 DAY  , DURATION : 1 MONTH
     Dates: start: 202206, end: 20220703
  2. FUROSEMIDE [Interacting]
     Active Substance: FUROSEMIDE
     Indication: Product used for unknown indication
     Dosage: UNIT DOSE : 40 MG  , FREQUENCY TIME : 1 DAY , DURATION : 1 MONTH
     Dates: start: 202206, end: 20220703
  3. TERALITHE [Interacting]
     Active Substance: LITHIUM CARBONATE
     Indication: Bipolar disorder
     Dosage: FORM STRENGTH : 400 MG, SCORED PROLONGED-RELEASE TABLET, UNIT DOSE : 600 MG , FREQUENCY TIME : 1 DAY
     Dates: end: 20220703
  4. OXAZEPAM [Concomitant]
     Active Substance: OXAZEPAM
     Indication: Product used for unknown indication
     Dosage: FORM STRENGTH : 50 MG, SCORED TABLET , UNIT DOSE :150 MG  , FREQUENCY TIME :  1 DAY , THERAPY START
     Dates: end: 20220703
  5. VESICARE [Concomitant]
     Active Substance: SOLIFENACIN SUCCINATE
     Indication: Product used for unknown indication
     Dosage: FORM STRENGTH : 5 MG  , UNIT DOSE :5 MG  , FREQUENCY TIME :  1 DAY , THERAPY START DATE : ASKU
     Dates: end: 20220703
  6. VITAMIN B6 [Concomitant]
     Active Substance: PYRIDOXINE HYDROCHLORIDE
     Indication: Product used for unknown indication
     Dosage: UNIT DOSE : 1 DF  , FREQUENCY TIME :1 DAY , THERAPY START DATE : ASKU
     Dates: end: 20220703
  7. PROPRANOLOL [Concomitant]
     Active Substance: PROPRANOLOL HYDROCHLORIDE
     Indication: Product used for unknown indication
     Dosage: UNIT DOSE : 80 MG  , FREQUENCY TIME : 1 DAY , THERAPY START DATE : ASKU
     Dates: end: 20220703
  8. GUSELKUMAB [Concomitant]
     Active Substance: GUSELKUMAB
     Indication: Product used for unknown indication
     Dosage: UNIT DOSE :100 MG   , FREQUENCY TIME : 8 WEEKS  , DURATION : 5 MONTHS
     Dates: start: 202202, end: 20220703
  9. ZOPICLONE [Concomitant]
     Active Substance: ZOPICLONE
     Indication: Product used for unknown indication
     Dosage: UNIT DOSE : 7.5 MG , FREQUENCY TIME : 1 DAY , THERAPY START DATE : ASKU
     Dates: end: 20220703
  10. VITAMIN B1 [Concomitant]
     Active Substance: THIAMINE HYDROCHLORIDE
     Indication: Product used for unknown indication
     Dosage: UNIT DOSE : 1 DF , FREQUENCY TIME : 1 DAY,  THERAPY START DATE : ASKU
     Dates: end: 20220703
  11. PENTASA [Concomitant]
     Active Substance: MESALAMINE
     Indication: Product used for unknown indication
     Dosage: THERAPY START DATE : ASKU
     Dates: end: 20220703

REACTIONS (2)
  - Toxicity to various agents [Recovered/Resolved]
  - Drug interaction [Recovered/Resolved]

NARRATIVE: CASE EVENT DATE: 20220703
